FAERS Safety Report 6434839-8 (Version None)
Quarter: 2009Q4

REPORT INFORMATION
  Report Type: 
  Country: None (occurrence: None)
  Receive Date: 20091110
  Receipt Date: 20091027
  Transmission Date: 20100525
  Serious: No
  Sender: FDA-Public Use
  Company Number: US-JNJFOC-20091008955

PATIENT
  Sex: Male
  Weight: 68.04 kg

DRUGS (3)
  1. FENTANYL TRANSDERMAL SYSTEM [Suspect]
     Indication: BACK PAIN
     Route: 062
     Dates: start: 20091024
  2. ZANAFLEX [Concomitant]
     Indication: BACK PAIN
     Route: 048
  3. LUNESTA [Concomitant]
     Indication: SLEEP DISORDER
     Route: 048

REACTIONS (1)
  - WRONG TECHNIQUE IN DRUG USAGE PROCESS [None]
